FAERS Safety Report 9291846 (Version 2)
Quarter: 2013Q2

REPORT INFORMATION
  Report Type: Report from Study
  Country: IT (occurrence: IT)
  Receive Date: 20130516
  Receipt Date: 20130529
  Transmission Date: 20140414
  Serious: Yes (Hospitalization)
  Sender: FDA-Public Use
  Company Number: IT-ROCHE-1222470

PATIENT
  Age: 51 Year
  Sex: Female
  Weight: 81 kg

DRUGS (2)
  1. TRASTUZUMAB EMTANSINE [Suspect]
     Indication: BREAST CANCER
     Dosage: LAST DOSE PRIOR TO SAE: 22/APR/2013
     Route: 042
     Dates: start: 20130308
  2. CODEINE PHOSPHATE/PARACETAMOL [Concomitant]
     Dosage: 1 PIL X 6 PER DAY
     Route: 065
     Dates: start: 20130422, end: 20130430

REACTIONS (3)
  - Dysarthria [Not Recovered/Not Resolved]
  - Dizziness [Not Recovered/Not Resolved]
  - Nausea [Not Recovered/Not Resolved]
